FAERS Safety Report 8103037 (Version 9)
Quarter: 2012Q4

REPORT INFORMATION
  Report Type: 
  Country: US (occurrence: US)
  Receive Date: 20110824
  Receipt Date: 20121011
  Transmission Date: 20130627
  Serious: Yes (Hospitalization, Other)
  Sender: FDA-Public Use
  Company Number: US-JNJFOC-20110808245

PATIENT
  Age: 64 Year
  Sex: Female
  Weight: 53.98 kg

DRUGS (19)
  1. DOXORUBICIN HYDROCHLORIDE (DOXIL) [Suspect]
     Indication: MULTIPLE MYELOMA
     Route: 042
     Dates: start: 20110415
  2. DOXORUBICIN HYDROCHLORIDE (DOXIL) [Suspect]
     Indication: MULTIPLE MYELOMA
     Dosage: NDC number= 59676-960-02
     Route: 042
     Dates: start: 20110620
  3. DOXIL [Suspect]
     Indication: MULTIPLE MYELOMA
     Route: 042
     Dates: start: 20110618
  4. VELCADE [Suspect]
     Indication: MULTIPLE MYELOMA
     Route: 042
     Dates: start: 20110509
  5. VELCADE [Suspect]
     Indication: MULTIPLE MYELOMA
     Route: 042
     Dates: start: 20110415, end: 20110425
  6. VELCADE [Suspect]
     Indication: MULTIPLE MYELOMA
     Route: 042
     Dates: start: 20110620
  7. DEXAMETHASONE [Suspect]
     Indication: MULTIPLE MYELOMA
     Route: 048
     Dates: start: 20110415
  8. TOPROL [Concomitant]
     Route: 065
  9. NIFEDIPINE [Concomitant]
     Route: 065
  10. BACTRIM [Concomitant]
     Dosage: on Monday/ Wednesday/Friday
     Route: 048
  11. ACYCLOVIR [Concomitant]
     Route: 048
  12. ACYCLOVIR [Concomitant]
     Route: 048
  13. FLUCONAZOLE [Concomitant]
     Route: 048
  14. SENNA S [Concomitant]
     Indication: CONSTIPATION
     Route: 065
  15. PHOSLO [Concomitant]
     Dosage: 2 caps with meals
     Route: 065
  16. VITAMIN D [Concomitant]
     Route: 065
  17. FISH OIL [Concomitant]
     Route: 065
  18. ALOXI [Concomitant]
     Route: 042
  19. COMPAZINE [Concomitant]
     Indication: NAUSEA
     Route: 048

REACTIONS (5)
  - Urinary tract infection [Recovered/Resolved]
  - Fatigue [Not Recovered/Not Resolved]
  - Asthenia [Recovered/Resolved]
  - Peritonitis [Recovered/Resolved]
  - Duodenal ulcer perforation [Recovered/Resolved]
